FAERS Safety Report 16165403 (Version 4)
Quarter: 2021Q1

REPORT INFORMATION
  Report Type: Report from Study
  Country: US (occurrence: US)
  Receive Date: 20190405
  Receipt Date: 20210127
  Transmission Date: 20210419
  Serious: No
  Sender: FDA-Public Use
  Company Number: PHEH2019US014361

PATIENT
  Sex: Female

DRUGS (2)
  1. PROMACTA [Suspect]
     Active Substance: ELTROMBOPAG OLAMINE
     Dosage: 50 MG, UNKNOWN
     Route: 065
  2. PROMACTA [Suspect]
     Active Substance: ELTROMBOPAG OLAMINE
     Indication: PRODUCT USED FOR UNKNOWN INDICATION
     Dosage: UNK
     Route: 048

REACTIONS (2)
  - Platelet count decreased [Unknown]
  - Platelet count increased [Unknown]
